FAERS Safety Report 9928592 (Version 1)
Quarter: 2014Q1

REPORT INFORMATION
  Report Type: Spontaneous
  Country: JP (occurrence: JP)
  Receive Date: 20140227
  Receipt Date: 20140227
  Transmission Date: 20141002
  Serious: Yes (Hospitalization, Other)
  Sender: FDA-Public Use
  Company Number: JP-ELI_LILLY_AND_COMPANY-JP201402005959

PATIENT
  Age: 55 Year
  Sex: Male

DRUGS (7)
  1. STRATTERA [Suspect]
     Indication: ATTENTION DEFICIT/HYPERACTIVITY DISORDER
     Dosage: UNK
     Route: 048
     Dates: start: 20130318
  2. STRATTERA [Suspect]
     Dosage: UNK
     Route: 048
     Dates: start: 20130418
  3. STRATTERA [Suspect]
     Dosage: UNK
     Route: 048
     Dates: start: 20130513
  4. STRATTERA [Suspect]
     Dosage: UNK
     Route: 048
     Dates: start: 20130605, end: 20130622
  5. ATARAX-P [Concomitant]
     Dosage: UNK
     Route: 048
     Dates: start: 20130513
  6. ZYPREXA [Concomitant]
     Dosage: UNK
     Route: 048
     Dates: start: 20130617
  7. LEXAPRO [Concomitant]
     Dosage: UNK
     Dates: start: 20130617

REACTIONS (3)
  - Suicide attempt [Recovered/Resolved]
  - Suicidal ideation [Unknown]
  - Anxiety [Unknown]
